FAERS Safety Report 22070183 (Version 1)
Quarter: 2023Q1

REPORT INFORMATION
  Report Type: Report from Study
  Country: US (occurrence: US)
  Receive Date: 20230307
  Receipt Date: 20230307
  Transmission Date: 20230417
  Serious: Yes (Other)
  Sender: FDA-Public Use
  Company Number: US-JNJFOC-20230303060

PATIENT
  Age: 79 Year
  Sex: Male

DRUGS (2)
  1. SPRAVATO [Suspect]
     Active Substance: ESKETAMINE
     Indication: Depression
     Dosage: 56 MG, 2 TOTAL DOSES
     Dates: start: 20221014, end: 20221017
  2. SPRAVATO [Suspect]
     Active Substance: ESKETAMINE
     Dosage: 84 MG, 12 TOTAL DOSES
     Dates: start: 20221021, end: 20221125

REACTIONS (3)
  - Suicidal ideation [Unknown]
  - Depressed mood [Unknown]
  - Product dose omission issue [Unknown]
